FAERS Safety Report 5413018-7 (Version None)
Quarter: 2007Q3

REPORT INFORMATION
  Report Type: 
  Country: None (occurrence: None)
  Receive Date: 20070802
  Receipt Date: 20070731
  Transmission Date: 20080115
  Serious: Yes (Other)
  Sender: FDA-Public Use
  Company Number: AEJPN200700172

PATIENT
  Age: 3 Year
  Sex: Male

DRUGS (1)
  1. VENOGLOBULIN-I [Suspect]
     Indication: KAWASAKI'S DISEASE

REACTIONS (1)
  - IDIOPATHIC THROMBOCYTOPENIC PURPURA [None]
